FAERS Safety Report 24970633 (Version 3)
Quarter: 2025Q2

REPORT INFORMATION
  Report Type: Spontaneous
  Country: CZ (occurrence: CZ)
  Receive Date: 20250214
  Receipt Date: 20250407
  Transmission Date: 20250717
  Serious: Yes (Other)
  Sender: SANDOZ
  Company Number: CZ-SANDOZ-SDZ2025CZ008155

PATIENT
  Sex: Female

DRUGS (1)
  1. AMOXICILLIN\CLAVULANATE POTASSIUM [Suspect]
     Active Substance: AMOXICILLIN\CLAVULANATE POTASSIUM
     Indication: Product used for unknown indication
     Route: 065

REACTIONS (10)
  - Migraine [Unknown]
  - Encephalitis [Unknown]
  - Tinnitus [Unknown]
  - Feeling abnormal [Unknown]
  - Vertigo [Unknown]
  - Weight decreased [Unknown]
  - Diarrhoea [Unknown]
  - Nausea [Unknown]
  - Dizziness [Unknown]
  - Headache [Unknown]
